FAERS Safety Report 5810937-4 (Version None)
Quarter: 2008Q3

REPORT INFORMATION
  Report Type: 
  Country: None (occurrence: None)
  Receive Date: 20080716
  Receipt Date: 20080707
  Transmission Date: 20090109
  Serious: Yes (Other)
  Sender: FDA-Public Use
  Company Number: PHHY2008US12100

PATIENT
  Sex: Male
  Weight: 74 kg

DRUGS (2)
  1. EXJADE [Suspect]
     Dosage: 1500 MG/DAY
     Route: 048
     Dates: start: 20070507
  2. EXJADE [Suspect]
     Dosage: 1000 MG/DAY
     Route: 048

REACTIONS (2)
  - HYDRONEPHROSIS [None]
  - RENAL PAIN [None]
